FAERS Safety Report 6145760-7 (Version None)
Quarter: 2009Q2

REPORT INFORMATION
  Report Type: 
  Country: None (occurrence: None)
  Receive Date: 20090406
  Receipt Date: 20090406
  Transmission Date: 20091009
  Serious: Yes (Other)
  Sender: FDA-Public Use
  Company Number: None

PATIENT
  Age: 27 Year
  Sex: Male

DRUGS (1)
  1. LAMOTRIGINE [Suspect]
     Indication: CONVULSION
     Dosage: 125 MG BID
     Dates: start: 20071201

REACTIONS (3)
  - FEELING ABNORMAL [None]
  - VISION BLURRED [None]
  - VISUAL IMPAIRMENT [None]
